FAERS Safety Report 5361796-8 (Version None)
Quarter: 2007Q2

REPORT INFORMATION
  Report Type: 
  Country: None (occurrence: None)
  Receive Date: 20070619
  Receipt Date: 20070605
  Transmission Date: 20071010
  Serious: No
  Sender: FDA-Public Use
  Company Number: US-JNJFOC-20070500121

PATIENT
  Sex: Female
  Weight: 113.4 kg

DRUGS (14)
  1. INVEGA [Suspect]
     Route: 048
  2. INVEGA [Suspect]
     Indication: DRUG USE FOR UNKNOWN INDICATION
     Route: 048
  3. ZYPREXA [Concomitant]
  4. RISPERDAL CONSTA [Concomitant]
  5. LOVISTATIN [Concomitant]
  6. GLYBURIDE [Concomitant]
  7. HYDROCHLOROTHIAZIDE [Concomitant]
  8. ACTOSE [Concomitant]
  9. ZYRTEC [Concomitant]
  10. CLONAZEPAM [Concomitant]
  11. LEVOTHYROXINE SODIUM [Concomitant]
  12. LEXAPRO [Concomitant]
  13. METFORMIN HCL [Concomitant]
  14. DOXYCYCLINE [Concomitant]

REACTIONS (2)
  - NAUSEA [None]
  - VOMITING [None]
